FAERS Safety Report 18545137 (Version 2)
Quarter: 2020Q4

REPORT INFORMATION
  Report Type: Spontaneous
  Country: US (occurrence: US)
  Receive Date: 20201125
  Receipt Date: 20201203
  Transmission Date: 20210114
  Serious: Yes (Other)
  Sender: FDA-Public Use
  Company Number: US-PFIZER INC-2016337962

PATIENT
  Age: 71 Year

DRUGS (1)
  1. DILANTIN [Suspect]
     Active Substance: PHENYTOIN
     Dosage: 100 MG, 3X/DAY (MORNING BEFORE NOON)
     Route: 048

REACTIONS (2)
  - Cataract [Unknown]
  - Visual impairment [Unknown]
